FAERS Safety Report 21562426 (Version 1)
Quarter: 2022Q4

REPORT INFORMATION
  Report Type: Spontaneous
  Country: CN (occurrence: CN)
  Receive Date: 20221107
  Receipt Date: 20221107
  Transmission Date: 20230113
  Serious: Yes (Other)
  Sender: FDA-Public Use
  Company Number: CN-PFIZER INC-PV202200096620

PATIENT
  Age: 11 Year
  Sex: Male
  Weight: 36.8 kg

DRUGS (10)
  1. CYTARABINE [Suspect]
     Active Substance: CYTARABINE
     Indication: Acute lymphocytic leukaemia
     Dosage: 2.15 G, 2X/DAY
     Route: 041
     Dates: start: 20220119, end: 20220121
  2. CYTARABINE [Suspect]
     Active Substance: CYTARABINE
     Dosage: 35 MG
     Route: 041
  3. METHOTREXATE SODIUM [Suspect]
     Active Substance: METHOTREXATE SODIUM
     Indication: Neoplasm
     Dosage: 12.5 MG, 1X/DAY
     Route: 037
     Dates: start: 20220119, end: 20220119
  4. DEXAMETHASONE SODIUM PHOSPHATE [Suspect]
     Active Substance: DEXAMETHASONE SODIUM PHOSPHATE
     Indication: Neoplasm
     Dosage: 5 MG, 1X/DAY
     Route: 037
     Dates: start: 20220119, end: 20220119
  5. PEGASPARGASE [Suspect]
     Active Substance: PEGASPARGASE
     Indication: Neoplasm
     Dosage: 2156 IU, 1X/DAY
     Route: 030
     Dates: start: 20220121, end: 20220121
  6. SODIUM CHLORIDE [Suspect]
     Active Substance: SODIUM CHLORIDE
     Indication: Vehicle solution use
     Dosage: 20 ML, 1X/DAY
     Route: 042
     Dates: start: 20220119, end: 20220119
  7. VINDESINE SULFATE [Suspect]
     Active Substance: VINDESINE SULFATE
     Indication: Neoplasm
     Dosage: 3.2 MG, 1X/DAY (LYOPHILIZED POWDER)
     Route: 042
     Dates: start: 20220119, end: 20220119
  8. SODIUM CHLORIDE [Concomitant]
     Active Substance: SODIUM CHLORIDE
     Indication: Vehicle solution use
     Dosage: 5 ML, 1X/DAY
     Route: 037
     Dates: start: 20220119, end: 20220119
  9. SODIUM CHLORIDE [Concomitant]
     Active Substance: SODIUM CHLORIDE
     Indication: Neoplasm
     Dosage: 5 ML, 1X/DAY
     Route: 037
     Dates: start: 20220119, end: 20220119
  10. SODIUM CHLORIDE [Concomitant]
     Active Substance: SODIUM CHLORIDE
     Indication: Vehicle solution use
     Dosage: 250 ML
     Route: 041
     Dates: start: 20220119, end: 20220121

REACTIONS (2)
  - Myelosuppression [Recovering/Resolving]
  - Blood glucose increased [Not Recovered/Not Resolved]

NARRATIVE: CASE EVENT DATE: 20220126
